FAERS Safety Report 7580478-5 (Version None)
Quarter: 2011Q2

REPORT INFORMATION
  Report Type: 
  Country: None (occurrence: None)
  Receive Date: 20110629
  Receipt Date: 20110608
  Transmission Date: 20111010
  Serious: Yes (Hospitalization, Congenital Anomaly)
  Sender: FDA-Public Use
  Company Number: A0924597A

PATIENT
  Sex: Male

DRUGS (1)
  1. PAXIL [Suspect]
     Route: 064
     Dates: start: 19950901, end: 19960301

REACTIONS (12)
  - PULMONARY ARTERY STENOSIS CONGENITAL [None]
  - HEART DISEASE CONGENITAL [None]
  - VENTRICULAR SEPTAL DEFECT [None]
  - CRANIOSYNOSTOSIS [None]
  - DRUG EXPOSURE DURING PREGNANCY [None]
  - RIGHT VENTRICLE OUTFLOW TRACT OBSTRUCTION [None]
  - CARDIAC FAILURE CONGESTIVE [None]
  - PLAGIOCEPHALY [None]
  - ATRIAL SEPTAL DEFECT [None]
  - BODY HEIGHT BELOW NORMAL [None]
  - FAILURE TO THRIVE [None]
  - ENCEPHALOPATHY [None]
